FAERS Safety Report 19761614 (Version 1)
Quarter: 2021Q3

REPORT INFORMATION
  Report Type: Other
  Country: DK (occurrence: DK)
  Receive Date: 20210830
  Receipt Date: 20210830
  Transmission Date: 20211014
  Serious: Yes (Death, Other)
  Sender: FDA-Public Use
  Company Number: DK-ROCHE-2897624

PATIENT

DRUGS (4)
  1. OXALIPLATIN. [Suspect]
     Active Substance: OXALIPLATIN
     Indication: COLORECTAL CANCER METASTATIC
     Dosage: ON DAY 1 EVERY 3 WEEKS
     Route: 042
  2. TS?1 [Suspect]
     Active Substance: GIMERACIL\OTERACIL\TEGAFUR
     Indication: COLORECTAL CANCER METASTATIC
     Dosage: ON DAYS 1?14 EVERY 3 WEEKS
     Route: 048
  3. IRINOTECAN [Suspect]
     Active Substance: IRINOTECAN
     Indication: COLORECTAL CANCER METASTATIC
     Dosage: 250 MG/M2 ON DAY 1 EVERY 3 WEEKS OR 180 MG/M2 ON DAY 1 EVERY 2 WEEKS
     Route: 042
  4. BEVACIZUMAB. [Suspect]
     Active Substance: BEVACIZUMAB
     Indication: COLORECTAL CANCER METASTATIC
     Dosage: ON DAY 1
     Route: 042

REACTIONS (19)
  - Platelet count abnormal [Unknown]
  - Neutrophil count abnormal [Unknown]
  - Infection [Unknown]
  - Peripheral sensory neuropathy [Unknown]
  - Hyponatraemia [Unknown]
  - Ileus [Unknown]
  - Anaemia [Unknown]
  - Diarrhoea [Unknown]
  - Vomiting [Unknown]
  - Fatigue [Unknown]
  - Nausea [Unknown]
  - Mucosal inflammation [Unknown]
  - Pain [Unknown]
  - Rectal perforation [Fatal]
  - Dehydration [Unknown]
  - Constipation [Unknown]
  - Embolism [Unknown]
  - Sepsis [Fatal]
  - Large intestine perforation [Fatal]
